FAERS Safety Report 20711897 (Version 3)
Quarter: 2024Q4

REPORT INFORMATION
  Report Type: Report from Study
  Country: FR (occurrence: FR)
  Receive Date: 20220414
  Receipt Date: 20241009
  Transmission Date: 20250115
  Serious: Yes (Other)
  Sender: GILEAD
  Company Number: FR-GILEAD-2022-0577830

PATIENT
  Sex: Female
  Weight: 66 kg

DRUGS (4)
  1. SACITUZUMAB GOVITECAN-HZIY [Suspect]
     Active Substance: SACITUZUMAB GOVITECAN-HZIY
     Indication: Triple negative breast cancer
     Dosage: 10 MG/KG, C1D1D8
     Route: 042
     Dates: start: 20211115, end: 20211122
  2. SACITUZUMAB GOVITECAN-HZIY [Suspect]
     Active Substance: SACITUZUMAB GOVITECAN-HZIY
     Dosage: 10 MG/KG, C2D1D8
     Route: 042
     Dates: start: 20211206, end: 20211213
  3. SACITUZUMAB GOVITECAN-HZIY [Suspect]
     Active Substance: SACITUZUMAB GOVITECAN-HZIY
     Dosage: 10 MG/KG, C3D1D8
     Route: 042
     Dates: start: 20211228, end: 20220104
  4. SACITUZUMAB GOVITECAN-HZIY [Suspect]
     Active Substance: SACITUZUMAB GOVITECAN-HZIY
     Dosage: 10 MG/KG, C3D1D8
     Route: 042
     Dates: start: 20220118, end: 20220125

REACTIONS (1)
  - Disease progression [Not Recovered/Not Resolved]
